FAERS Safety Report 5354622-4 (Version None)
Quarter: 2007Q2

REPORT INFORMATION
  Report Type: 
  Country: None (occurrence: None)
  Receive Date: 20070611
  Receipt Date: 20070601
  Transmission Date: 20071010
  Serious: Yes (Other)
  Sender: FDA-Public Use
  Company Number: 2007SP010924

PATIENT
  Age: 69 Year
  Sex: Female
  Weight: 52 kg

DRUGS (4)
  1. TEMODAL [Suspect]
     Indication: ANAPLASTIC ASTROCYTOMA
     Dosage: 75 MG/M2; QD; PO
     Route: 048
     Dates: start: 20070530, end: 20070601
  2. FERON [Concomitant]
  3. BAKTAR [Concomitant]
  4. LOXONIN [Concomitant]

REACTIONS (1)
  - TOXIC SKIN ERUPTION [None]
